FAERS Safety Report 9300520 (Version 2)
Quarter: 2013Q2

REPORT INFORMATION
  Report Type: Spontaneous
  Country: BR (occurrence: BR)
  Receive Date: 20130521
  Receipt Date: 20130605
  Transmission Date: 20140414
  Serious: Yes (Other)
  Sender: FDA-Public Use
  Company Number: BR-BRISTOL-MYERS SQUIBB COMPANY-18895508

PATIENT
  Age: 31 Year
  Sex: Female

DRUGS (3)
  1. GLIFAGE XR [Suspect]
     Indication: TYPE 2 DIABETES MELLITUS
     Dosage: 2DF?TABS
     Dates: start: 20130308, end: 201305
  2. FOLIC ACID [Concomitant]
     Indication: PREGNANCY
     Dosage: TABS?2 DF
  3. FERROUS SULFATE [Concomitant]
     Indication: PREGNANCY
     Dosage: TABS

REACTIONS (6)
  - Vaginal haemorrhage [Recovered/Resolved]
  - Hyperglycaemia [Recovered/Resolved]
  - Hypertension [Unknown]
  - Heart rate increased [Recovered/Resolved]
  - Dizziness [Recovered/Resolved]
  - Pregnancy [Not Recovered/Not Resolved]
